FAERS Safety Report 6556813-3 (Version None)
Quarter: 2010Q1

REPORT INFORMATION
  Report Type: 
  Country: None (occurrence: None)
  Receive Date: 20100128
  Receipt Date: 20100118
  Transmission Date: 20100710
  Serious: Yes (Hospitalization, Disabling, Other)
  Sender: FDA-Public Use
  Company Number: PHBS2007JP10095

PATIENT
  Age: 33 Year
  Sex: Male

DRUGS (3)
  1. NEORAL [Suspect]
     Indication: PEMPHIGOID
     Dosage: 300 MG/DAY
     Route: 048
     Dates: start: 20060720, end: 20061127
  2. NEORAL [Suspect]
     Dosage: 150 MG/DAY
     Route: 048
     Dates: start: 20061128, end: 20070101
  3. METHYLPREDNISOLONE [Concomitant]

REACTIONS (12)
  - CENTRAL NERVOUS SYSTEM LESION [None]
  - CONVULSION [None]
  - DYSKINESIA [None]
  - HYPOAESTHESIA [None]
  - LEUKOCYTOSIS [None]
  - LOSS OF CONSCIOUSNESS [None]
  - MUSCLE SPASMS [None]
  - MYOCLONUS [None]
  - PLEOCYTOSIS [None]
  - PSYCHOMOTOR HYPERACTIVITY [None]
  - STATUS EPILEPTICUS [None]
  - TOXIC ENCEPHALOPATHY [None]
